FAERS Safety Report 4692713-1 (Version None)
Quarter: 2005Q2

REPORT INFORMATION
  Report Type: 
  Country: None (occurrence: None)
  Receive Date: 20050617
  Receipt Date: 20050314
  Transmission Date: 20051028
  Serious: Yes (Death, Hospitalization)
  Sender: FDA-Public Use
  Company Number: US-MERCK-0503USA03889

PATIENT
  Age: 61 Year
  Sex: Male
  Weight: 89 kg

DRUGS (4)
  1. VIOXX [Suspect]
     Indication: ARTHRITIS
     Route: 048
     Dates: start: 20021101, end: 20030301
  2. VIOXX [Suspect]
     Route: 048
     Dates: start: 20021101, end: 20030301
  3. NEXIUM [Concomitant]
     Indication: OESOPHAGITIS ULCERATIVE
     Route: 065
     Dates: start: 20010917
  4. NEXIUM [Concomitant]
     Indication: GASTROOESOPHAGEAL REFLUX DISEASE
     Route: 065
     Dates: start: 20010917

REACTIONS (6)
  - BLOOD CHOLESTEROL INCREASED [None]
  - CEREBROVASCULAR ACCIDENT [None]
  - COLONIC POLYP [None]
  - EMOTIONAL DISTRESS [None]
  - HYPERTENSION [None]
  - LIMB INJURY [None]
